FAERS Safety Report 18871730 (Version 1)
Quarter: 2021Q1

REPORT INFORMATION
  Report Type: Other
  Country: US (occurrence: US)
  Receive Date: 20210210
  Receipt Date: 20210210
  Transmission Date: 20210420
  Serious: Yes (Other)
  Sender: FDA-Public Use
  Company Number: US-ROCHE-2763263

PATIENT

DRUGS (3)
  1. CAPECITABINE. [Suspect]
     Active Substance: CAPECITABINE
     Indication: COLORECTAL CANCER METASTATIC
     Route: 048
  2. OXALIPLATIN. [Suspect]
     Active Substance: OXALIPLATIN
     Indication: COLORECTAL CANCER METASTATIC
     Route: 042
  3. CATEQUENTINIB. [Suspect]
     Active Substance: CATEQUENTINIB
     Indication: COLORECTAL CANCER METASTATIC
     Route: 048

REACTIONS (4)
  - Neutropenia [Unknown]
  - Lipase increased [Unknown]
  - Hypertriglyceridaemia [Unknown]
  - Hypertension [Unknown]
